FAERS Safety Report 11977810 (Version 2)
Quarter: 2016Q1

REPORT INFORMATION
  Report Type: Spontaneous
  Country: US (occurrence: US)
  Receive Date: 20160129
  Receipt Date: 20160217
  Transmission Date: 20160526
  Serious: No
  Sender: FDA-Public Use
  Company Number: US-SHIRE-US201600986

PATIENT
  Age: 77 Year
  Sex: Female

DRUGS (2)
  1. CANASA [Concomitant]
     Active Substance: MESALAMINE
     Indication: INFLAMMATORY BOWEL DISEASE
     Dosage: UNK, UNKNOWN
     Route: 054
     Dates: start: 201512
  2. LIALDA [Suspect]
     Active Substance: MESALAMINE
     Indication: INFLAMMATORY BOWEL DISEASE
     Dosage: 1.2 G, 1X/DAY:QD
     Route: 048
     Dates: start: 2015, end: 20160203

REACTIONS (5)
  - Disorganised speech [Not Recovered/Not Resolved]
  - Dizziness [Not Recovered/Not Resolved]
  - Logorrhoea [Not Recovered/Not Resolved]
  - Blood pressure decreased [Unknown]
  - Product use issue [Recovered/Resolved]

NARRATIVE: CASE EVENT DATE: 2015
